FAERS Safety Report 8131165-6 (Version None)
Quarter: 2012Q1

REPORT INFORMATION
  Report Type: 
  Country: None (occurrence: None)
  Receive Date: 20120213
  Receipt Date: 20120131
  Transmission Date: 20120608
  Serious: Yes (Hospitalization)
  Sender: FDA-Public Use
  Company Number: US-JNJFOC-20120204170

PATIENT
  Sex: Male
  Weight: 62.14 kg

DRUGS (26)
  1. REMICADE [Suspect]
     Indication: INFLAMMATORY BOWEL DISEASE
     Route: 042
     Dates: start: 20050807, end: 20100507
  2. IMMUNE GLOBULIN INTRAVENOUS (HUMAN) [Concomitant]
     Dates: start: 20080801
  3. GABAPENTIN [Concomitant]
  4. DULCOLAX [Concomitant]
  5. FOLIC ACID [Concomitant]
  6. XOPENEX [Concomitant]
  7. RIBOFLAVIN [Concomitant]
  8. ACETAMINOPHEN [Concomitant]
  9. ATENOLOL [Concomitant]
  10. COENZYME 10 [Concomitant]
  11. NEXIUM [Concomitant]
  12. CODEINE SULFATE [Concomitant]
  13. E VITAMIN [Concomitant]
  14. AMIKACIN SULFATE [Concomitant]
  15. PULMICORT-100 [Concomitant]
  16. NALTREXONE HYDROCHLORIDE [Concomitant]
  17. LIPOIC ACID [Concomitant]
  18. SELENIUM [Concomitant]
  19. MESALAMINE [Concomitant]
     Route: 048
  20. CALCIUM CARBONATE [Concomitant]
  21. PROVIGIL [Concomitant]
  22. ASCORBIC ACID [Concomitant]
  23. BENADRYL [Concomitant]
  24. ZOFRAN [Concomitant]
  25. MULTIPLE VITAMIN [Concomitant]
  26. GLYCOLAX [Concomitant]

REACTIONS (1)
  - DEHYDRATION [None]
